FAERS Safety Report 14720218 (Version 2)
Quarter: 2018Q2

REPORT INFORMATION
  Report Type: Report from Study
  Country: RU (occurrence: RU)
  Receive Date: 20180405
  Receipt Date: 20180424
  Transmission Date: 20180711
  Serious: Yes (Life-Threatening, Hospitalization)
  Sender: FDA-Public Use
  Company Number: RU-CELGENEUS-RUS-20180306010

PATIENT
  Age: 78 Year
  Sex: Male
  Weight: 72 kg

DRUGS (11)
  1. ALLOPURINOL. [Concomitant]
     Active Substance: ALLOPURINOL
     Indication: PROPHYLAXIS
     Dosage: 300 MILLIGRAM
     Route: 048
     Dates: start: 20180226, end: 20180314
  2. NORMAL SALINE SOLUTION [Concomitant]
     Indication: PROPHYLAXIS
     Route: 041
     Dates: start: 20180213, end: 20180313
  3. TRAMADOL. [Concomitant]
     Active Substance: TRAMADOL
     Indication: PAIN IN EXTREMITY
     Dosage: 2 MILLILITER
     Route: 041
     Dates: start: 20180308, end: 20180309
  4. OMEZ [Concomitant]
     Active Substance: OMEPRAZOLE
     Indication: CHRONIC GASTRITIS
     Dosage: 40 MILLIGRAM
     Route: 048
     Dates: start: 2008
  5. VENETOCLAX. [Concomitant]
     Active Substance: VENETOCLAX
     Indication: ACUTE MYELOID LEUKAEMIA
     Route: 065
  6. ASPARCAM [Concomitant]
     Indication: VENTRICULAR EXTRASYSTOLES
     Dosage: 0.175 + 0.175G
     Route: 048
     Dates: start: 20180307
  7. TRAMADOL. [Concomitant]
     Active Substance: TRAMADOL
     Dosage: 2 MILLILITER
     Route: 041
     Dates: start: 20180314, end: 20180314
  8. TRAMADOL. [Concomitant]
     Active Substance: TRAMADOL
     Dosage: 2 MILLILITER
     Route: 041
     Dates: start: 20180317, end: 20180317
  9. ALLOPURINOL. [Concomitant]
     Active Substance: ALLOPURINOL
     Indication: GOUT
     Dosage: 300 MILLIGRAM
     Route: 048
     Dates: start: 1988, end: 20180329
  10. AZACITIDINE. [Suspect]
     Active Substance: AZACITIDINE
     Indication: ACUTE MYELOID LEUKAEMIA
     Dosage: 75 MILLIGRAM/SQ. METER
     Route: 058
     Dates: start: 20180302
  11. HYPOTHIAZID [Concomitant]
     Active Substance: HYDROCHLOROTHIAZIDE
     Indication: CARDIAC FAILURE CONGESTIVE
     Dosage: 20 MILLIGRAM
     Route: 048
     Dates: start: 20180226, end: 20180313

REACTIONS (1)
  - Atrial fibrillation [Recovered/Resolved]

NARRATIVE: CASE EVENT DATE: 20180309
